FAERS Safety Report 8509613 (Version 2)
Quarter: 2013Q1

REPORT INFORMATION
  Report Type: Spontaneous
  Country: GR (occurrence: GR)
  Receive Date: 20120413
  Receipt Date: 20130122
  Transmission Date: 20140127
  Serious: Yes (Hospitalization)
  Sender: FDA-Public Use
  Company Number: GR-B.I. PHARMACEUTICALS,INC./RIDGEFIELD-2012-EU-01984GB

PATIENT
  Age: 72 Year
  Sex: Male

DRUGS (3)
  1. PRADAXA [Suspect]
     Indication: ATRIAL FIBRILLATION
     Dosage: 220 MG
     Route: 048
     Dates: start: 201202, end: 201203
  2. PRADAXA [Suspect]
     Route: 048
     Dates: start: 201204
  3. INDERAL [Concomitant]
     Indication: HYPERTENSION

REACTIONS (3)
  - Embolic stroke [Recovered/Resolved]
  - Paresis [Recovered/Resolved]
  - Thrombotic stroke [Recovered/Resolved]
